FAERS Safety Report 7459863-8 (Version None)
Quarter: 2011Q2

REPORT INFORMATION
  Report Type: 
  Country: None (occurrence: None)
  Receive Date: 20110504
  Receipt Date: 20110504
  Transmission Date: 20111010
  Serious: Yes (Other)
  Sender: FDA-Public Use
  Company Number: None

PATIENT
  Sex: Male
  Weight: 3.1752 kg

DRUGS (1)
  1. METHYLDOPA [Suspect]
     Indication: HYPERTENSION
     Dosage: TWICE DAILY PO
     Route: 048
     Dates: start: 19870801, end: 19880321

REACTIONS (4)
  - PERSONALITY DISORDER [None]
  - MATERNAL DRUGS AFFECTING FOETUS [None]
  - APATHY [None]
  - DEPRESSION [None]
